FAERS Safety Report 18573613 (Version 4)
Quarter: 2021Q2

REPORT INFORMATION
  Report Type: Report from Study
  Country: FR (occurrence: FR)
  Receive Date: 20201203
  Receipt Date: 20210505
  Transmission Date: 20210717
  Serious: Yes (Hospitalization, Other)
  Sender: FDA-Public Use
  Company Number: NVSC2020FR286295

PATIENT
  Sex: Female
  Weight: 91 kg

DRUGS (8)
  1. REVOLADE [Suspect]
     Active Substance: ELTROMBOPAG OLAMINE
     Dosage: 100 MG, QW (25 MG, 4 TABLETS PER WEEK)
     Route: 048
     Dates: start: 20190410, end: 20200123
  2. REVOLADE [Suspect]
     Active Substance: ELTROMBOPAG OLAMINE
     Dosage: 75 MG, QW (3 TABLETS PER WEEK)
     Route: 048
     Dates: start: 20200123, end: 20200702
  3. REVOLADE [Suspect]
     Active Substance: ELTROMBOPAG OLAMINE
     Indication: IMMUNE THROMBOCYTOPENIA
     Dosage: 14.3 MG, QD
     Route: 048
     Dates: start: 20190125
  4. REVOLADE [Suspect]
     Active Substance: ELTROMBOPAG OLAMINE
     Dosage: 50 MG, QD
     Route: 048
     Dates: start: 20190125, end: 20190208
  5. REVOLADE [Suspect]
     Active Substance: ELTROMBOPAG OLAMINE
     Dosage: 25 MG, QW
     Route: 048
     Dates: start: 20210128
  6. REVOLADE [Suspect]
     Active Substance: ELTROMBOPAG OLAMINE
     Dosage: 25 MG, QD
     Route: 048
     Dates: start: 20210128
  7. REVOLADE [Suspect]
     Active Substance: ELTROMBOPAG OLAMINE
     Dosage: 25 MG, QD
     Route: 048
     Dates: start: 20190208, end: 20190410
  8. REVOLADE [Suspect]
     Active Substance: ELTROMBOPAG OLAMINE
     Dosage: 50 MG, QW (2 TABLETS OF 25 MG PER WEEK)
     Route: 048
     Dates: start: 20200702, end: 20210128

REACTIONS (5)
  - Pyelonephritis [Recovered/Resolved]
  - Herpes zoster [Recovered/Resolved]
  - Back pain [Unknown]
  - Incorrect dose administered [Unknown]
  - Abdominal pain [Unknown]

NARRATIVE: CASE EVENT DATE: 202007
